FAERS Safety Report 6727861-5 (Version None)
Quarter: 2010Q2

REPORT INFORMATION
  Report Type: 
  Country: None (occurrence: None)
  Receive Date: 20100517
  Receipt Date: 20100504
  Transmission Date: 20101027
  Serious: Yes (Hospitalization, Other)
  Sender: FDA-Public Use
  Company Number: US-ELI_LILLY_AND_COMPANY-US200910000901

PATIENT
  Sex: Female

DRUGS (3)
  1. FORTEO [Suspect]
     Indication: OSTEOPOROSIS
     Dosage: 20 UG, DAILY (1/D)
     Dates: start: 20090501
  2. ASPIRIN [Concomitant]
     Dosage: UNK, DAILY (1/D)
  3. ZOCOR [Concomitant]

REACTIONS (8)
  - ARTHRALGIA [None]
  - BACK PAIN [None]
  - CONTUSION [None]
  - FALL [None]
  - HIP FRACTURE [None]
  - LOWER LIMB FRACTURE [None]
  - PAIN [None]
  - WEIGHT BEARING DIFFICULTY [None]
